FAERS Safety Report 6774162-5 (Version None)
Quarter: 2010Q2

REPORT INFORMATION
  Report Type: 
  Country: None (occurrence: None)
  Receive Date: 20100617
  Receipt Date: 20100611
  Transmission Date: 20101027
  Serious: Yes (Hospitalization)
  Sender: FDA-Public Use
  Company Number: JP-JNJFOC-20100511025

PATIENT
  Age: 70 Year
  Sex: Male

DRUGS (1)
  1. ITRIZOLE [Suspect]
     Indication: ONYCHOMYCOSIS
     Dosage: PULSE THERAPY
     Route: 048

REACTIONS (4)
  - ENANTHEMA [None]
  - LARYNGEAL OEDEMA [None]
  - PRURITUS [None]
  - STEVENS-JOHNSON SYNDROME [None]
